FAERS Safety Report 8850187 (Version 2)
Quarter: 2012Q4

REPORT INFORMATION
  Report Type: 
  Country: JP (occurrence: JP)
  Receive Date: 20121019
  Receipt Date: 20121102
  Transmission Date: 20130627
  Serious: Yes (Death)
  Sender: FDA-Public Use
  Company Number: JP-PFIZER INC-2012220548

PATIENT
  Age: 72 Year
  Sex: Male

DRUGS (2)
  1. LYRICA [Suspect]
     Indication: CANCER PAIN
     Dosage: UNK
     Route: 048
  2. OXYCONTIN [Concomitant]
     Dosage: UNK
     Dates: start: 20120825

REACTIONS (3)
  - Gastric cancer [Fatal]
  - Disease progression [Fatal]
  - Tinnitus [Unknown]
